FAERS Safety Report 22540781 (Version 4)
Quarter: 2024Q3

REPORT INFORMATION
  Report Type: Spontaneous
  Country: GB (occurrence: GB)
  Receive Date: 20230609
  Receipt Date: 20240904
  Transmission Date: 20241017
  Serious: Yes (Death, Other)
  Sender: RANBAXY
  Company Number: GB-002147023-NVSC2023GB115877

PATIENT
  Age: 83 Year
  Sex: Male

DRUGS (3)
  1. LENALIDOMIDE [Suspect]
     Active Substance: LENALIDOMIDE
     Indication: Product used for unknown indication
     Dosage: 2.5 MG, QD, (DAILY FOR 21 DAYS AND THEN 7 DAYS REST, 21 RAN)
     Route: 048
  2. CLODRONATE DISODIUM [Suspect]
     Active Substance: CLODRONATE DISODIUM
     Indication: Product used for unknown indication
     Dosage: 800 MG, BID
     Route: 048
  3. FILGRASTIM [Concomitant]
     Active Substance: FILGRASTIM
     Indication: Product used for unknown indication
     Dosage: UNK, (STRENGTH AND DOSE 30MIU/0.5ML)
     Route: 065

REACTIONS (3)
  - Neutropenia [Unknown]
  - Pain [Unknown]
  - Death [Fatal]
